FAERS Safety Report 8587290-9 (Version None)
Quarter: 2012Q3

REPORT INFORMATION
  Report Type: 
  Country: None (occurrence: None)
  Receive Date: 20120810
  Receipt Date: 20120131
  Transmission Date: 20120928
  Serious: Yes (Other)
  Sender: FDA-Public Use
  Company Number: US-ASTRAZENECA-2012SE06675

PATIENT
  Age: 57 Year
  Sex: Female

DRUGS (3)
  1. FASLODEX [Suspect]
     Route: 030
  2. ARIMIDEX [Suspect]
     Indication: BREAST CANCER
     Route: 048
  3. ZOMETA [Suspect]
     Route: 065

REACTIONS (5)
  - MYALGIA [None]
  - ARTHRALGIA [None]
  - PAIN [None]
  - DISEASE PROGRESSION [None]
  - METASTATIC NEOPLASM [None]
